FAERS Safety Report 6071838-2 (Version None)
Quarter: 2009Q1

REPORT INFORMATION
  Report Type: 
  Country: None (occurrence: None)
  Receive Date: 20090210
  Receipt Date: 20090206
  Transmission Date: 20090719
  Serious: Yes (Death)
  Sender: FDA-Public Use
  Company Number: PHHY2009AR04294

PATIENT
  Sex: Male

DRUGS (1)
  1. EXFORGE [Suspect]
     Dosage: 160 MG VALSARTAN/10 MG AMLODIPINE
     Dates: start: 20080422

REACTIONS (1)
  - DEATH [None]
